FAERS Safety Report 9854216 (Version 1)
Quarter: 2014Q1

REPORT INFORMATION
  Report Type: Report from Study
  Country: CR (occurrence: CR)
  Receive Date: 20140130
  Receipt Date: 20140130
  Transmission Date: 20141002
  Serious: Yes (Death)
  Sender: FDA-Public Use
  Company Number: CR-ROCHE-1341615

PATIENT
  Age: 77 Year
  Sex: Female

DRUGS (4)
  1. BONVIVA [Suspect]
     Indication: OSTEOPOROSIS
     Route: 048
     Dates: start: 20120630, end: 201305
  2. METFORMIN [Concomitant]
     Indication: DIABETES MELLITUS
     Route: 065
  3. DONEPEZIL [Concomitant]
     Indication: DEMENTIA ALZHEIMER^S TYPE
  4. AKATINOL [Concomitant]
     Indication: DEMENTIA ALZHEIMER^S TYPE

REACTIONS (1)
  - Respiratory arrest [Fatal]
